FAERS Safety Report 6825443-8 (Version None)
Quarter: 2010Q3

REPORT INFORMATION
  Report Type: 
  Country: None (occurrence: None)
  Receive Date: 20100708
  Receipt Date: 20061211
  Transmission Date: 20110219
  Serious: No
  Sender: FDA-Public Use
  Company Number: US-PFIZER INC-2006153612

PATIENT
  Sex: Female
  Weight: 86.18 kg

DRUGS (7)
  1. CHANTIX [Suspect]
     Indication: SMOKING CESSATION THERAPY
     Dates: start: 20061101
  2. AMITRIPTYLINE [Concomitant]
  3. KLONOPIN [Concomitant]
  4. LASIX [Concomitant]
  5. EFFEXOR [Concomitant]
  6. FERROUS SULFATE [Concomitant]
  7. ATENOLOL [Concomitant]

REACTIONS (6)
  - CONSTIPATION [None]
  - FLATULENCE [None]
  - NAUSEA [None]
  - NERVOUSNESS [None]
  - TREMOR [None]
  - VISION BLURRED [None]
